FAERS Safety Report 4568113-1 (Version None)
Quarter: 2005Q1

REPORT INFORMATION
  Report Type: 
  Country: None (occurrence: None)
  Receive Date: 20050131
  Receipt Date: 20040121
  Transmission Date: 20050727
  Serious: Yes (Hospitalization)
  Sender: FDA-Public Use
  Company Number: DE-2004-031656

PATIENT
  Age: 75 Year
  Sex: Female
  Weight: 77 kg

DRUGS (1)
  1. MAGNEVIST [Suspect]
     Indication: SPINAL MYELOGRAM
     Dosage: 15 ML, 1 DOSE, INTRATHECAL
     Route: 037
     Dates: start: 20040909, end: 20040909

REACTIONS (5)
  - DYSARTHRIA [None]
  - MEDICATION ERROR [None]
  - PARAPARESIS [None]
  - RETROGRADE AMNESIA [None]
  - SOMNOLENCE [None]
